FAERS Safety Report 6767911-3 (Version None)
Quarter: 2010Q2

REPORT INFORMATION
  Report Type: 
  Country: None (occurrence: None)
  Receive Date: 20100610
  Receipt Date: 20100525
  Transmission Date: 20101027
  Serious: Yes (Other)
  Sender: FDA-Public Use
  Company Number: 2010SCPR000463

PATIENT
  Age: 52 Year
  Sex: Female

DRUGS (1)
  1. VALPROIC ACID [Suspect]
     Indication: DRUG USE FOR UNKNOWN INDICATION
     Dosage: 190 MG, TID, 1140 MG,QD

REACTIONS (13)
  - AFFECTIVE DISORDER [None]
  - ANXIETY [None]
  - AUTOMATISM [None]
  - BLOOD LACTIC ACID INCREASED [None]
  - DELUSION [None]
  - DRUG TOXICITY [None]
  - DYSPHONIA [None]
  - INJURY [None]
  - IRRITABILITY [None]
  - PARKINSONISM [None]
  - PSYCHOTIC DISORDER [None]
  - RED BLOOD CELL SEDIMENTATION RATE INCREASED [None]
  - SEBORRHOEA [None]
